FAERS Safety Report 6353243-4 (Version None)
Quarter: 2009Q3

REPORT INFORMATION
  Report Type: 
  Country: None (occurrence: None)
  Receive Date: 20090912
  Receipt Date: 20090622
  Transmission Date: 20100115
  Serious: No
  Sender: FDA-Public Use
  Company Number: US-ABBOTT-08P-163-0455984-00

PATIENT
  Sex: Female
  Weight: 114 kg

DRUGS (20)
  1. HUMIRA [Suspect]
     Indication: RHEUMATOID ARTHRITIS
     Dosage: 4TH INJECTION
     Route: 058
  2. PREDNISONE [Concomitant]
     Indication: RHEUMATOID ARTHRITIS
     Route: 048
     Dates: start: 20070701
  3. METHOTREXATE [Concomitant]
     Indication: RHEUMATOID ARTHRITIS
     Route: 048
     Dates: start: 20080301
  4. METFORMIN HCL [Concomitant]
     Indication: DIABETES MELLITUS
     Route: 048
     Dates: start: 20080401
  5. ESOMEPRAZOLE MAGNESIUM [Concomitant]
     Indication: GASTROOESOPHAGEAL REFLUX DISEASE
     Route: 048
  6. ESOMEPRAZOLE MAGNESIUM [Concomitant]
     Indication: PEPTIC ULCER
  7. TOLTERODINE TARTRATE [Concomitant]
     Indication: INCONTINENCE
     Route: 048
  8. RAUWOLFA [Concomitant]
     Indication: HYPERTENSION
     Route: 048
  9. GLUCOSAMINE SULFATE [Concomitant]
     Indication: DRUG USE FOR UNKNOWN INDICATION
  10. VIGRAN [Concomitant]
     Indication: DRUG USE FOR UNKNOWN INDICATION
  11. CALCIUM GLUCONATE [Concomitant]
     Indication: DRUG USE FOR UNKNOWN INDICATION
  12. COLECALCIFEROL [Concomitant]
     Indication: DRUG USE FOR UNKNOWN INDICATION
  13. TAMURIC [Concomitant]
     Indication: DRUG USE FOR UNKNOWN INDICATION
  14. DIMETAPP [Concomitant]
     Indication: DRUG USE FOR UNKNOWN INDICATION
  15. CINNAMOMUM VERUM [Concomitant]
     Indication: DRUG USE FOR UNKNOWN INDICATION
  16. CHROMIUM NICOTINATE [Concomitant]
     Indication: DRUG USE FOR UNKNOWN INDICATION
  17. FISH OIL [Concomitant]
     Indication: DRUG USE FOR UNKNOWN INDICATION
  18. MAGNESIUM CARBONATE [Concomitant]
     Indication: DRUG USE FOR UNKNOWN INDICATION
  19. FOLIC ACID [Concomitant]
     Indication: DRUG USE FOR UNKNOWN INDICATION
  20. MILK THISTLE [Concomitant]
     Indication: DRUG USE FOR UNKNOWN INDICATION

REACTIONS (2)
  - DRUG DELIVERY SYSTEM MALFUNCTION [None]
  - INCORRECT DOSE ADMINISTERED [None]
